FAERS Safety Report 4427811-0 (Version None)
Quarter: 2004Q3

REPORT INFORMATION
  Report Type: 
  Country: None (occurrence: None)
  Receive Date: 20040812
  Receipt Date: 20040728
  Transmission Date: 20050211
  Serious: No
  Sender: FDA-Public Use
  Company Number: 04P-163-0268338-00

PATIENT
  Age: 34 Year
  Sex: Female

DRUGS (6)
  1. NORVIR [Suspect]
     Indication: HIV INFECTION
     Dosage: 100 MG, 1 IN 1 D
     Dates: start: 20030828
  2. ATAZANAVIR [Suspect]
     Indication: HIV INFECTION
     Dosage: 300 MG, 1 IN 1 D, PER ORAL
     Route: 048
     Dates: start: 20030828
  3. EFAVIRENZ [Concomitant]
  4. LAMIVUDINE [Concomitant]
  5. FENOFIBRATE [Concomitant]
  6. HYDROMORPHONE HYDROCHLORIDE [Concomitant]

REACTIONS (5)
  - LIPOMA [None]
  - MOVEMENT DISORDER [None]
  - MUSCULOSKELETAL DISCOMFORT [None]
  - NECK PAIN [None]
  - OBSTRUCTION [None]
